FAERS Safety Report 4665999-7 (Version None)
Quarter: 2005Q2

REPORT INFORMATION
  Report Type: 
  Country: None (occurrence: None)
  Receive Date: 20050517
  Receipt Date: 20050120
  Transmission Date: 20051028
  Serious: Yes (Hospitalization)
  Sender: FDA-Public Use
  Company Number: S05-USA-00393-01

PATIENT
  Age: 81 Year
  Sex: Female
  Weight: 64.4108 kg

DRUGS (8)
  1. NAMENDA [Suspect]
     Indication: DEMENTIA
     Dosage: 10 MG BID PO
     Route: 048
     Dates: start: 20040415
  2. ARICEPT [Concomitant]
  3. ASPIRIN [Concomitant]
  4. COLACE(DOCUSATE SODIUM) [Concomitant]
  5. VITAMIN B12(VITAMIN B12) [Concomitant]
  6. TYLENOL [Concomitant]
  7. TUMS(CALCIUM CARBONATE) [Concomitant]
  8. MULTI-VITAMINS [Concomitant]

REACTIONS (2)
  - FALL [None]
  - HIP FRACTURE [None]
